FAERS Safety Report 25246257 (Version 1)
Quarter: 2025Q2

REPORT INFORMATION
  Report Type: Spontaneous
  Country: AR (occurrence: AR)
  Receive Date: 20250428
  Receipt Date: 20250428
  Transmission Date: 20250717
  Serious: Yes (Death, Other)
  Sender: ALNYLAM PHARMACEUTICALS
  Company Number: AR-ALNYLAM PHARMACEUTICALS, INC.-ALN-2025-002859

PATIENT

DRUGS (1)
  1. AMVUTTRA [Suspect]
     Active Substance: VUTRISIRAN
     Indication: Product used for unknown indication
     Route: 065

REACTIONS (2)
  - Death [Fatal]
  - T-cell lymphoma [Unknown]

NARRATIVE: CASE EVENT DATE: 20250422
